FAERS Safety Report 8094225-4 (Version None)
Quarter: 2012Q1

REPORT INFORMATION
  Report Type: 
  Country: None (occurrence: None)
  Receive Date: 20120131
  Receipt Date: 20120130
  Transmission Date: 20120608
  Serious: Yes (Life-Threatening, Hospitalization, Other)
  Sender: FDA-Public Use
  Company Number: IT-JNJFOC-20110901659

PATIENT
  Sex: Female
  Weight: 55 kg

DRUGS (2)
  1. PALIPERIDONE PALMITATE [Suspect]
     Indication: SCHIZOPHRENIA
     Dates: start: 20110817
  2. PALIPERIDONE PALMITATE [Suspect]
     Dates: start: 20110810

REACTIONS (3)
  - RENAL FAILURE [None]
  - PSYCHOMOTOR RETARDATION [None]
  - MUSCLE RIGIDITY [None]
